FAERS Safety Report 5063518-7 (Version None)
Quarter: 2006Q3

REPORT INFORMATION
  Report Type: 
  Country: None (occurrence: None)
  Receive Date: 20060727
  Receipt Date: 20060718
  Transmission Date: 20061208
  Serious: Yes (Hospitalization)
  Sender: FDA-Public Use
  Company Number: GB-AVENTIS-200617565GDDC

PATIENT
  Age: 82 Year
  Sex: Female

DRUGS (1)
  1. FLAGYL [Suspect]
     Indication: LYME DISEASE

REACTIONS (17)
  - BALANCE DISORDER [None]
  - CONVULSION [None]
  - ENURESIS [None]
  - EYE ROLLING [None]
  - FALL [None]
  - HAEMATURIA [None]
  - HAEMORRHAGE [None]
  - HYPERTENSION [None]
  - HYPOTONIA [None]
  - IMMUNOGLOBULINS ABNORMAL [None]
  - INCONTINENCE [None]
  - LOSS OF CONSCIOUSNESS [None]
  - ORAL CANDIDIASIS [None]
  - PROTEIN URINE PRESENT [None]
  - PROTEINURIA [None]
  - PYURIA [None]
  - SYNCOPE [None]
